FAERS Safety Report 7545996-4 (Version None)
Quarter: 2011Q2

REPORT INFORMATION
  Report Type: 
  Country: None (occurrence: None)
  Receive Date: 20110614
  Receipt Date: 20110601
  Transmission Date: 20111010
  Serious: Yes (Other)
  Sender: FDA-Public Use
  Company Number: PHHY2011BR48291

PATIENT
  Sex: Female

DRUGS (7)
  1. SIMVASTATIN [Concomitant]
     Dosage: 40 MG, UNK
  2. OLMESARTAN MEDOXOMIL [Concomitant]
  3. ALDOMET [Concomitant]
  4. DIOVAN [Suspect]
     Dosage: 320 MG, UNK
  5. ASPIRIN [Concomitant]
  6. LEVOTHYROXINE SODIUM [Concomitant]
  7. TENORETIC [Concomitant]

REACTIONS (2)
  - ARTERIAL CATHETERISATION [None]
  - BLOOD PRESSURE INADEQUATELY CONTROLLED [None]
